FAERS Safety Report 4579287-0 (Version None)
Quarter: 2005Q1

REPORT INFORMATION
  Report Type: 
  Country: None (occurrence: None)
  Receive Date: 20050209
  Receipt Date: 20050127
  Transmission Date: 20050727
  Serious: No
  Sender: FDA-Public Use
  Company Number: 2004AC00363

PATIENT
  Age: 81 Year
  Sex: Female

DRUGS (4)
  1. CRESTOR [Suspect]
     Dosage: 10 MG DAILY
     Dates: start: 20040205, end: 20040821
  2. ATACAND [Concomitant]
  3. ACTONEL [Concomitant]
  4. MAGNESIUM SANDOZ [Concomitant]

REACTIONS (2)
  - NEPHROLITHIASIS [None]
  - RENAL FAILURE [None]
